FAERS Safety Report 9168904 (Version 1)
Quarter: 2013Q1

REPORT INFORMATION
  Report Type: Spontaneous
  Country: US (occurrence: US)
  Receive Date: 20130318
  Receipt Date: 20130318
  Transmission Date: 20140127
  Serious: Yes (Other)
  Sender: FDA-Public Use
  Company Number: US-ASTRAZENECA-2013SE16420

PATIENT
  Age: 81 Year
  Sex: Female

DRUGS (13)
  1. ZESTRIL [Suspect]
     Route: 048
  2. ATACAND [Suspect]
     Route: 048
  3. TOPROL [Suspect]
     Route: 048
  4. LOVAZA [Concomitant]
     Route: 048
  5. HYDROCHLOROTHIAZIDE [Concomitant]
  6. METOPROLOL TARTRATE [Concomitant]
     Dosage: 1 TABLET IN THE MORNING AND 2 AT NIGHT
     Route: 048
  7. ASPIRIN [Concomitant]
  8. GABAPENTIN [Concomitant]
  9. TRAZODONE HCL [Concomitant]
  10. CRESTOR [Concomitant]
     Route: 048
  11. ZANTAC [Concomitant]
     Route: 048
  12. TYLENOL ARTHRITIS [Concomitant]
  13. PLAVIX [Concomitant]
     Route: 048

REACTIONS (3)
  - Angioedema [Unknown]
  - Rash [Unknown]
  - Dyspnoea [Unknown]
